FAERS Safety Report 18474200 (Version 3)
Quarter: 2020Q4

REPORT INFORMATION
  Report Type: Spontaneous
  Country: SE (occurrence: SE)
  Receive Date: 20201106
  Receipt Date: 20201207
  Transmission Date: 20210114
  Serious: Yes (Hospitalization, Disabling, Other)
  Sender: FDA-Public Use
  Company Number: SE-GILEAD-2020-0496464

PATIENT
  Sex: Male
  Weight: 85 kg

DRUGS (22)
  1. BISOPROLOL SANDOZ [Concomitant]
     Active Substance: BISOPROLOL
     Indication: CARDIAC FAILURE CONGESTIVE
     Dosage: 5 MG, UNK
     Dates: start: 20131220
  2. EPLERENON BLUEFISH [Concomitant]
     Indication: CARDIAC FAILURE
     Dosage: UNK
     Dates: start: 20200114
  3. ALFUZOSIN TEVA [Concomitant]
     Active Substance: ALFUZOSIN
     Dosage: UNK
     Dates: start: 20150922
  4. VEKLURY [Suspect]
     Active Substance: REMDESIVIR
     Indication: COVID-19
     Dosage: 200 MG, ONCE
     Route: 042
     Dates: start: 20200923, end: 20200923
  5. ESOMEPRAZOL ACTAVIS [Concomitant]
     Active Substance: ESOMEPRAZOLE
     Dosage: 20 MG, QD
     Dates: start: 20131220
  6. ESOMEPRAZOL ACTAVIS [Concomitant]
     Active Substance: ESOMEPRAZOLE
     Dosage: UNK
     Dates: start: 20131220
  7. FUROSEMID ACCORD [Concomitant]
     Dosage: UNK
     Dates: start: 20200923
  8. ELIQUIS [Concomitant]
     Active Substance: APIXABAN
     Indication: THROMBOSIS PROPHYLAXIS
     Dosage: UNK
     Dates: start: 20200918
  9. ESCITALOPRAM ACCORD [Concomitant]
     Active Substance: ESCITALOPRAM OXALATE
     Dosage: UNK
     Dates: start: 20200519
  10. CEFOTAXIM MIP [Suspect]
     Active Substance: CEFOTAXIME SODIUM
     Indication: COVID-19
     Dosage: UNK
     Route: 042
     Dates: start: 20200923
  11. ATORVASTATIN TEVA [Concomitant]
     Active Substance: ATORVASTATIN
     Dosage: 40 MG, QD
     Dates: start: 20141027
  12. DEXAMETHASON ABCUR [Suspect]
     Active Substance: DEXAMETHASONE
     Indication: COVID-19
     Dosage: UNK
     Route: 065
     Dates: start: 20200923, end: 20201003
  13. ELIQUIS [Concomitant]
     Active Substance: APIXABAN
     Indication: COVID-19
     Dosage: 5 MG, UNK
     Dates: start: 20200918
  14. BISOPROLOL SANDOZ [Concomitant]
     Active Substance: BISOPROLOL
     Indication: BLOOD PRESSURE MEASUREMENT
     Dosage: UNK
     Dates: start: 20131220
  15. ESCITALOPRAM ACCORD [Concomitant]
     Active Substance: ESCITALOPRAM OXALATE
     Indication: DEPRESSION
     Dosage: 10 MG, UNK
     Dates: start: 20200519
  16. HEMINEVRIN [CLOMETHIAZOLE EDISILATE] [Concomitant]
     Active Substance: CLOMETHIAZOLE EDISYLATE
     Dosage: 1-2 CAPSULES IF NEEDED, MAX 2 PCS PER DAY
     Dates: start: 20200830
  17. EPLERENONE. [Concomitant]
     Active Substance: EPLERENONE
     Dosage: UNK
     Dates: start: 20200114
  18. ENTRESTO [Concomitant]
     Active Substance: SACUBITRIL\VALSARTAN
     Indication: CARDIAC FAILURE CONGESTIVE
     Dosage: UNK
     Dates: start: 20200121
  19. ATORVASTATIN TEVA [Concomitant]
     Active Substance: ATORVASTATIN
     Dosage: UNK
     Dates: start: 20141027
  20. FINASTERIDE ACCORD [Concomitant]
     Active Substance: FINASTERIDE
     Indication: PROSTATIC DISORDER
     Dosage: UNK
     Dates: start: 20190611
  21. EPLERENONE. [Concomitant]
     Active Substance: EPLERENONE
     Indication: CARDIAC FAILURE CONGESTIVE
     Dosage: 25 MG, UNK
     Dates: start: 20200114
  22. FURIX [CEFUROXIME] [Concomitant]
     Active Substance: CEFUROXIME
     Dosage: 40 MG
     Dates: start: 20200114

REACTIONS (6)
  - Facial paresis [Recovered/Resolved]
  - Aphasia [Unknown]
  - Depressed level of consciousness [Recovered/Resolved]
  - Carotid artery stenosis [Not Recovered/Not Resolved]
  - Muscle spasticity [Recovered/Resolved]
  - Partial seizures [Recovering/Resolving]

NARRATIVE: CASE EVENT DATE: 20200923
